FAERS Safety Report 6701812-1 (Version None)
Quarter: 2010Q2

REPORT INFORMATION
  Report Type: 
  Country: None (occurrence: None)
  Receive Date: 20100429
  Receipt Date: 20100419
  Transmission Date: 20101027
  Serious: Yes (Hospitalization)
  Sender: FDA-Public Use
  Company Number: US-SP-2010-00862

PATIENT
  Sex: Female

DRUGS (4)
  1. IPOL [Suspect]
     Indication: IMMUNISATION
     Route: 058
     Dates: start: 20100201, end: 20100201
  2. TUBERSOL [Suspect]
     Indication: TUBERCULIN TEST
     Route: 023
     Dates: start: 20100201, end: 20100201
  3. MEASLES, MUMPS AND RUBELLA VACCINE [Suspect]
     Indication: IMMUNISATION
     Route: 058
     Dates: start: 20100201, end: 20100201
  4. VARICELLA  VACCINE [Suspect]
     Indication: IMMUNISATION
     Route: 058
     Dates: start: 20100201, end: 20100201

REACTIONS (5)
  - ARTHRALGIA [None]
  - GAIT DISTURBANCE [None]
  - JUVENILE ARTHRITIS [None]
  - PYREXIA [None]
  - SYNOVITIS [None]
